FAERS Safety Report 13039356 (Version 1)
Quarter: 2016Q4

REPORT INFORMATION
  Report Type: Spontaneous
  Country: US (occurrence: US)
  Receive Date: 20161216
  Receipt Date: 20161216
  Transmission Date: 20170207
  Serious: Yes (Life-Threatening, Hospitalization, Disabling)
  Sender: FDA-Public Use
  Company Number: None

PATIENT
  Age: 61 Year
  Sex: Male
  Weight: 108 kg

DRUGS (7)
  1. LOSARTAN. [Concomitant]
     Active Substance: LOSARTAN
  2. PRAVASTATIN. [Concomitant]
     Active Substance: PRAVASTATIN
  3. SILDENAFIL CITRATE. [Concomitant]
     Active Substance: SILDENAFIL CITRATE
  4. TORSEMIDE 20MG [Suspect]
     Active Substance: TORSEMIDE
     Indication: RENAL DISORDER
     Dosage: QUANTITY:1 TABLET(S); DAILY; ORAL?
     Route: 048
     Dates: start: 20161103, end: 20161127
  5. CLOPIDOGREL [Concomitant]
     Active Substance: CLOPIDOGREL BISULFATE
  6. TORSEMIDE 20MG [Suspect]
     Active Substance: TORSEMIDE
     Indication: BLOOD PRESSURE ABNORMAL
     Dosage: QUANTITY:1 TABLET(S); DAILY; ORAL?
     Route: 048
     Dates: start: 20161103, end: 20161127
  7. COCONUT OIL [Concomitant]
     Active Substance: COCONUT OIL

REACTIONS (4)
  - Muscle spasms [None]
  - Pollakiuria [None]
  - Cerebrovascular accident [None]
  - Musculoskeletal stiffness [None]

NARRATIVE: CASE EVENT DATE: 20161124
